FAERS Safety Report 7671382-2 (Version None)
Quarter: 2011Q3

REPORT INFORMATION
  Report Type: 
  Country: None (occurrence: None)
  Receive Date: 20110809
  Receipt Date: 20110106
  Transmission Date: 20111222
  Serious: No
  Sender: FDA-Public Use
  Company Number: US-BAYER-2011-003049

PATIENT
  Age: 53 Year
  Sex: Female

DRUGS (2)
  1. CIPROFLOXACIN HCL [Suspect]
     Indication: CYSTITIS
     Dosage: 250 MG, BID
     Route: 048
     Dates: start: 20101201
  2. XANAX [Concomitant]

REACTIONS (4)
  - MUSCULOSKELETAL PAIN [None]
  - PAIN IN EXTREMITY [None]
  - TENDONITIS [None]
  - HYPOAESTHESIA [None]
